FAERS Safety Report 8097514-2 (Version None)
Quarter: 2012Q1

REPORT INFORMATION
  Report Type: 
  Country: None (occurrence: None)
  Receive Date: 20120131
  Receipt Date: 20120124
  Transmission Date: 20120608
  Serious: Yes (Other)
  Sender: FDA-Public Use
  Company Number: US-TEVA-318955USA

PATIENT
  Sex: Female
  Weight: 76.726 kg

DRUGS (6)
  1. FLONASE [Concomitant]
     Indication: HYPERSENSITIVITY
  2. LORAZEPAM [Concomitant]
     Dosage: .5 MILLIGRAM;
     Route: 048
  3. PROAIR HFA [Suspect]
     Indication: ASTHMA
     Route: 055
     Dates: start: 20110201, end: 20111001
  4. LEVOXYL [Concomitant]
     Indication: HYPOTHYROIDISM
     Dosage: 75 MICROGRAM;
     Route: 048
  5. METFORMIN HCL [Concomitant]
     Indication: INSULIN RESISTANCE
  6. OLANZAPINE [Concomitant]
     Route: 048

REACTIONS (4)
  - HYPERTENSION [None]
  - PALPITATIONS [None]
  - DYSPNOEA [None]
  - ANAPHYLACTIC REACTION [None]
